FAERS Safety Report 5607713-4 (Version None)
Quarter: 2008Q1

REPORT INFORMATION
  Report Type: 
  Country: None (occurrence: None)
  Receive Date: 20080130
  Receipt Date: 20080125
  Transmission Date: 20080703
  Serious: Yes (Other)
  Sender: FDA-Public Use
  Company Number: US-BRISTOL-MYERS SQUIBB COMPANY-14057954

PATIENT

DRUGS (1)
  1. BRISTOL-VIDEX [Suspect]
     Indication: HIV INFECTION

REACTIONS (1)
  - PORTAL HYPERTENSION [None]
